FAERS Safety Report 6980677-7 (Version None)
Quarter: 2010Q3

REPORT INFORMATION
  Report Type: 
  Country: None (occurrence: None)
  Receive Date: 20100914
  Receipt Date: 20100903
  Transmission Date: 20110219
  Serious: Yes (Other)
  Sender: FDA-Public Use
  Company Number: GB-BAXTER-2010BH023071

PATIENT

DRUGS (3)
  1. CYCLOPHOSPHAMIDE [Suspect]
     Indication: MULTIPLE MYELOMA
     Route: 048
  2. LENALIDOMIDE [Suspect]
     Indication: MULTIPLE MYELOMA
     Route: 065
  3. DEXAMETHASONE [Suspect]
     Indication: MULTIPLE MYELOMA
     Route: 048

REACTIONS (1)
  - HERPES ZOSTER [None]
